FAERS Safety Report 10074335 (Version 1)
Quarter: 2014Q2

REPORT INFORMATION
  Report Type: Spontaneous
  Country: US (occurrence: US)
  Receive Date: 20140411
  Receipt Date: 20140411
  Transmission Date: 20141212
  Serious: No
  Sender: FDA-Public Use
  Company Number: US-SANOFI-AVENTIS-2013SA052406

PATIENT
  Sex: Female

DRUGS (1)
  1. ALLEGRA-D, 12 HR [Suspect]
     Indication: MULTIPLE ALLERGIES
     Dosage: TAKEN FROM- WHEN1ST OUT OR 15YRS
     Route: 065

REACTIONS (1)
  - Medication residue present [Unknown]
